FAERS Safety Report 8183933-2 (Version None)
Quarter: 2012Q1

REPORT INFORMATION
  Report Type: 
  Country: None (occurrence: None)
  Receive Date: 20120305
  Receipt Date: 20120227
  Transmission Date: 20120608
  Serious: Yes (Hospitalization)
  Sender: FDA-Public Use
  Company Number: GB-ROCHE-1045264

PATIENT
  Sex: Male
  Weight: 117 kg

DRUGS (13)
  1. RANIBIZUMAB [Suspect]
     Indication: DIABETIC RETINAL OEDEMA
     Route: 050
     Dates: start: 20111004, end: 20111004
  2. GLUCOPHAGE [Concomitant]
     Dates: start: 19900101
  3. BUMETANIDE [Concomitant]
     Dates: start: 19900101
  4. DULOXETIME HYDROCHLORIDE [Concomitant]
     Dates: start: 20051215
  5. WARFARIN SODIUM [Concomitant]
     Dates: start: 20091026
  6. ROSUVASTATIN [Concomitant]
     Dates: start: 20080220
  7. FENOFIBRATE [Concomitant]
     Dates: start: 20080221
  8. EPLERENONE [Concomitant]
     Dates: start: 20080221
  9. AMITRIPTYLINE HCL [Concomitant]
     Dates: start: 20051215
  10. PERINDOPRIL [Concomitant]
     Dates: start: 20080221
  11. NOVORAPID [Concomitant]
     Dates: start: 19900101
  12. BISOPROLOL FUMARATE [Concomitant]
     Dates: start: 19990119
  13. LANTUS [Concomitant]
     Dates: start: 19900101

REACTIONS (1)
  - URINARY RETENTION [None]
